FAERS Safety Report 13378395 (Version 1)
Quarter: 2017Q1

REPORT INFORMATION
  Report Type: Spontaneous
  Country: US (occurrence: US)
  Receive Date: 20170328
  Receipt Date: 20170328
  Transmission Date: 20170429
  Serious: Yes (Other)
  Sender: FDA-Public Use
  Company Number: US-PFIZER INC-2015448129

PATIENT
  Age: 51 Year
  Sex: Male

DRUGS (1)
  1. ATIVAN [Suspect]
     Active Substance: LORAZEPAM
     Indication: SEIZURE
     Dosage: UNK

REACTIONS (3)
  - Condition aggravated [Unknown]
  - Product use issue [Unknown]
  - Seizure [Unknown]
